FAERS Safety Report 11123478 (Version 1)
Quarter: 2015Q2

REPORT INFORMATION
  Report Type: Not Available
  Country: CN (occurrence: CN)
  Receive Date: 20150519
  Receipt Date: 20150519
  Transmission Date: 20150821
  Serious: Yes (Life-Threatening)
  Sender: FDA-Public Use
  Company Number: CN-MUNDIPHARMA DS AND PHARMACOVIGILANCE-GBR-2015-0027824

PATIENT
  Age: 56 Year
  Sex: Male
  Weight: 78 kg

DRUGS (1)
  1. MS CONTIN [Suspect]
     Active Substance: MORPHINE SULFATE
     Indication: CANCER PAIN
     Dosage: 120 MG, Q12H
     Route: 048
     Dates: start: 20140526, end: 20140529

REACTIONS (4)
  - Nervous system disorder [Recovering/Resolving]
  - Somnolence [Recovering/Resolving]
  - Hypotension [Recovering/Resolving]
  - Hyperhidrosis [Recovering/Resolving]

NARRATIVE: CASE EVENT DATE: 20140529
